FAERS Safety Report 15772255 (Version 1)
Quarter: 2018Q4

REPORT INFORMATION
  Report Type: Spontaneous
  Country: JP (occurrence: JP)
  Receive Date: 20181228
  Receipt Date: 20181228
  Transmission Date: 20190205
  Serious: Yes (Other)
  Sender: FDA-Public Use
  Company Number: JP-ASTRAZENECA-2018SF69740

PATIENT
  Age: 61 Year
  Sex: Female

DRUGS (8)
  1. OSIMERTINIB. [Suspect]
     Active Substance: OSIMERTINIB
     Indication: LUNG ADENOCARCINOMA
     Route: 048
  2. OSIMERTINIB. [Suspect]
     Active Substance: OSIMERTINIB
     Indication: LUNG ADENOCARCINOMA
     Route: 048
  3. CARBOPLATIN. [Concomitant]
     Active Substance: CARBOPLATIN
  4. PEMETREXED. [Concomitant]
     Active Substance: PEMETREXED
  5. ERLOTINIB [Concomitant]
     Active Substance: ERLOTINIB
  6. BEVACIZUMAB. [Concomitant]
     Active Substance: BEVACIZUMAB
  7. GEFITINIB. [Suspect]
     Active Substance: GEFITINIB
     Indication: LUNG ADENOCARCINOMA
     Route: 048
  8. AFATINIB [Concomitant]
     Active Substance: AFATINIB

REACTIONS (3)
  - Drug resistance [Unknown]
  - Aspartate aminotransferase increased [Unknown]
  - Alanine aminotransferase increased [Unknown]
